FAERS Safety Report 23530727 (Version 1)
Quarter: 2024Q1

REPORT INFORMATION
  Report Type: Spontaneous
  Country: US (occurrence: US)
  Receive Date: 20240216
  Receipt Date: 20240216
  Transmission Date: 20240410
  Serious: No
  Sender: FDA-Public Use
  Company Number: US-Blueprint Medicines Corporation-2361

PATIENT

DRUGS (1)
  1. AYVAKIT [Suspect]
     Active Substance: AVAPRITINIB
     Indication: Product used for unknown indication
     Route: 065

REACTIONS (2)
  - Adverse drug reaction [Unknown]
  - Drug ineffective [Unknown]
